FAERS Safety Report 7065185-X (Version None)
Quarter: 2010Q4

REPORT INFORMATION
  Report Type: 
  Country: None (occurrence: None)
  Receive Date: 20101027
  Receipt Date: 19941028
  Transmission Date: 20110411
  Serious: Yes (Death, Hospitalization, Disabling)
  Sender: FDA-Public Use
  Company Number: US-ROCHE-940202111001

PATIENT
  Sex: Male
  Weight: 77.1 kg

DRUGS (2)
  1. TEGISON [Suspect]
     Route: 048
     Dates: start: 19940804, end: 19940810
  2. TEGISON [Suspect]
     Route: 048

REACTIONS (10)
  - ASTHENIA [None]
  - DEATH [None]
  - EMBOLISM ARTERIAL [None]
  - GASTRIC ULCER [None]
  - HAEMATOCHEZIA [None]
  - HEADACHE [None]
  - NAUSEA [None]
  - PAIN [None]
  - VOMITING [None]
  - WEIGHT DECREASED [None]
